FAERS Safety Report 13022182 (Version 3)
Quarter: 2017Q1

REPORT INFORMATION
  Report Type: Spontaneous
  Country: US (occurrence: US)
  Receive Date: 20161213
  Receipt Date: 20170103
  Transmission Date: 20170428
  Serious: No
  Sender: FDA-Public Use
  Company Number: US-PFIZER INC-2016250427

PATIENT
  Age: 76 Year
  Sex: Female

DRUGS (5)
  1. AFINITOR [Concomitant]
     Active Substance: EVEROLIMUS
     Dosage: UNK
     Dates: start: 201612
  2. IBRANCE [Suspect]
     Active Substance: PALBOCICLIB
     Indication: BREAST CANCER METASTATIC
     Dosage: 100 MG, UNK
     Dates: start: 201512
  3. IBRANCE [Suspect]
     Active Substance: PALBOCICLIB
     Dosage: 10 MG, 1X/DAY
     Dates: start: 201511, end: 201611
  4. LETROZOLE. [Concomitant]
     Active Substance: LETROZOLE
     Dosage: 2.5 MG, UNK
     Dates: start: 201511, end: 20161120
  5. AROMASIN [Concomitant]
     Active Substance: EXEMESTANE
     Dosage: 25 MG, UNK
     Dates: start: 201612

REACTIONS (3)
  - Condition aggravated [Not Recovered/Not Resolved]
  - Neoplasm progression [Not Recovered/Not Resolved]
  - Hypoacusis [Not Recovered/Not Resolved]
